FAERS Safety Report 9924094 (Version 1)
Quarter: 2014Q1

REPORT INFORMATION
  Report Type: Report from Study
  Country: FR (occurrence: FR)
  Receive Date: 20140226
  Receipt Date: 20140226
  Transmission Date: 20141002
  Serious: Yes (Hospitalization)
  Sender: FDA-Public Use
  Company Number: FR-ROCHE-1351028

PATIENT
  Sex: Female

DRUGS (12)
  1. RITUXIMAB [Suspect]
     Indication: RHEUMATOID ARTHRITIS
     Dosage: DAY 1
     Route: 042
     Dates: start: 20080626
  2. RITUXIMAB [Suspect]
     Dosage: DAY 15
     Route: 042
     Dates: start: 20080710
  3. RITUXIMAB [Suspect]
     Dosage: DAY 1
     Route: 042
     Dates: start: 20090316
  4. RITUXIMAB [Suspect]
     Dosage: DAY 15
     Route: 042
     Dates: start: 20090330
  5. RITUXIMAB [Suspect]
     Dosage: DAY 1
     Route: 042
     Dates: start: 20110111
  6. RITUXIMAB [Suspect]
     Dosage: DAY 15
     Route: 042
     Dates: start: 20110125
  7. RITUXIMAB [Suspect]
     Dosage: DAY 1
     Route: 042
     Dates: start: 20110912
  8. RITUXIMAB [Suspect]
     Dosage: DAY 1
     Route: 042
     Dates: start: 20120410
  9. CORTANCYL [Concomitant]
     Route: 065
     Dates: start: 20080710
  10. CORTANCYL [Concomitant]
     Route: 065
     Dates: start: 20080708
  11. CORTANCYL [Concomitant]
     Route: 065
     Dates: start: 20110125
  12. CORTANCYL [Concomitant]
     Route: 065
     Dates: start: 20120410

REACTIONS (23)
  - Fall [Unknown]
  - Loss of consciousness [Recovered/Resolved]
  - Facial bones fracture [Recovered/Resolved]
  - Blood pressure fluctuation [Recovered/Resolved]
  - Humerus fracture [Recovered/Resolved]
  - Bone pain [Unknown]
  - Thoracic vertebral fracture [Unknown]
  - Headache [Recovered/Resolved]
  - Erythema [Recovered/Resolved]
  - Vitamin D deficiency [Unknown]
  - Cardiac failure [Recovered/Resolved]
  - Infusion related reaction [Unknown]
  - Hypertension [Unknown]
  - Hallucination, visual [Recovered/Resolved]
  - Blood immunoglobulin G decreased [Not Recovered/Not Resolved]
  - Haematoma [Recovered/Resolved]
  - Tooth extraction [Recovered/Resolved]
  - Dizziness [Recovered/Resolved]
  - Skin infection [Recovered/Resolved]
  - Dental caries [Recovered/Resolved]
  - Dyspnoea [Recovered/Resolved]
  - Oedema peripheral [Recovered/Resolved]
  - Neutropenia [Recovered/Resolved]
